FAERS Safety Report 17056267 (Version 1)
Quarter: 2019Q4

REPORT INFORMATION
  Report Type: Spontaneous
  Country: DE (occurrence: DE)
  Receive Date: 20191121
  Receipt Date: 20191121
  Transmission Date: 20200122
  Serious: Yes (Other)
  Sender: FDA-Public Use
  Company Number: DE-TEVA-2019-DE-1137557

PATIENT
  Age: 56 Year
  Sex: Male

DRUGS (1)
  1. TAMSULOSIN-RATIOPHARM 0,4 MG HARTKAPSELN [Suspect]
     Active Substance: TAMSULOSIN
     Indication: PROSTATIC DISORDER
     Dosage: .4 MILLIGRAM DAILY;
     Route: 048

REACTIONS (3)
  - Retrograde ejaculation [Recovered/Resolved]
  - Abdominal pain [Recovered/Resolved]
  - Diarrhoea [Recovered/Resolved]
